FAERS Safety Report 7201713-9 (Version None)
Quarter: 2010Q4

REPORT INFORMATION
  Report Type: 
  Country: None (occurrence: None)
  Receive Date: 20101229
  Receipt Date: 20101216
  Transmission Date: 20110411
  Serious: Yes (Death)
  Sender: FDA-Public Use
  Company Number: JP-ELI_LILLY_AND_COMPANY-JP201007005094

PATIENT
  Sex: Male
  Weight: 74 kg

DRUGS (8)
  1. CYMBALTA [Suspect]
     Indication: DIABETIC NEUROPATHY
     Dosage: 20 MG, DAILY (1/D)
     Route: 048
     Dates: start: 20100526, end: 20100705
  2. CYMBALTA [Suspect]
     Dosage: 40 MG, DAILY (1/D)
     Route: 048
     Dates: start: 20100706
  3. GLYBURIDE [Concomitant]
     Indication: DIABETES MELLITUS
     Dosage: 6.25 MG, EACH MORNING
     Route: 048
     Dates: start: 20090804
  4. GLYBURIDE [Concomitant]
     Dosage: 3.75 MG, EACH EVENING
     Route: 048
     Dates: start: 20090804
  5. BASEN [Concomitant]
     Indication: DIABETES MELLITUS
     Dosage: 0.3 MG, 3/D
     Route: 048
     Dates: start: 20080711
  6. MAGNESIUM OXIDE [Concomitant]
     Indication: CONSTIPATION
     Dosage: 0.5 G, 2/D
     Route: 048
     Dates: start: 20070612
  7. HUMALOG [Concomitant]
     Indication: DIABETES MELLITUS
     Dosage: 8 IU, DAILY (1/D)
     Route: 058
     Dates: start: 20090803
  8. MICARDIS [Concomitant]
     Indication: HYPERTENSION
     Dosage: 40 MG, DAILY (1/D)
     Route: 048
     Dates: start: 20090804

REACTIONS (4)
  - ARTERIOSCLEROSIS [None]
  - BUNDLE BRANCH BLOCK RIGHT [None]
  - OFF LABEL USE [None]
  - SUDDEN DEATH [None]
